FAERS Safety Report 13602207 (Version 3)
Quarter: 2017Q2

REPORT INFORMATION
  Report Type: Spontaneous
  Country: US (occurrence: US)
  Receive Date: 20170601
  Receipt Date: 20170607
  Transmission Date: 20170830
  Serious: No
  Sender: FDA-Public Use
  Company Number: US-PFIZER INC-2017241409

PATIENT
  Age: 54 Year
  Sex: Female
  Weight: 61.23 kg

DRUGS (18)
  1. VENLAFAXINE XR [Suspect]
     Active Substance: VENLAFAXINE HYDROCHLORIDE
     Indication: DEPRESSION
     Dosage: 150 MG, DAILY
     Route: 048
     Dates: start: 200812
  2. IMDUR [Concomitant]
     Active Substance: ISOSORBIDE MONONITRATE
     Indication: STENT PLACEMENT
     Dosage: 30 MG, 1X/DAY
     Dates: start: 200812
  3. FUROSEMIDE. [Concomitant]
     Active Substance: FUROSEMIDE
     Indication: BLOOD PRESSURE ABNORMAL
     Dosage: 20 MG, 1X/DAY
  4. ATORVASTATIN [Concomitant]
     Active Substance: ATORVASTATIN
     Indication: BLOOD CHOLESTEROL
     Dosage: 20 MG, 1X/DAY
     Dates: start: 2008
  5. PLAVIX [Concomitant]
     Active Substance: CLOPIDOGREL BISULFATE
     Indication: STENT PLACEMENT
     Dosage: 75 MG, 1X/DAY
     Dates: start: 200812
  6. METOPROLOL SUCCINATE. [Concomitant]
     Active Substance: METOPROLOL SUCCINATE
     Indication: BLOOD PRESSURE ABNORMAL
     Dosage: 50 MG, 1X/DAY
  7. VITAMIN D [Concomitant]
     Active Substance: CHOLECALCIFEROL
     Indication: VITAMIN D DECREASED
     Dosage: 1000 IU, 1X/DAY
  8. PROTONIX [Concomitant]
     Active Substance: PANTOPRAZOLE SODIUM
     Indication: ULCER
     Dosage: 40 MG, AS NEEDED [ONCE TO TWICE DAILY]
     Dates: start: 200812
  9. FOLBEE [Concomitant]
     Active Substance: CYANOCOBALAMIN\FOLIC ACID\PYRIDOXINE HYDROCHLORIDE
     Indication: CARDIAC DISORDER
     Dosage: 1 DF, DAILY [CYANOCOBALAMIN: 1 MG, FOLIC ACID:2.5 MG, PYRIDOXINE HYDROCHLORIDE: 25 MG]
  10. EFFEXOR XR [Suspect]
     Active Substance: VENLAFAXINE HYDROCHLORIDE
     Dosage: 75 MG, UNK
     Dates: start: 2009
  11. ZANTAC [Concomitant]
     Active Substance: RANITIDINE HYDROCHLORIDE
     Indication: ULCER
  12. EFFEXOR XR [Suspect]
     Active Substance: VENLAFAXINE HYDROCHLORIDE
     Indication: DEPRESSION
     Dosage: 225 MG, UNK
  13. MAGNESIUM OXIDE. [Concomitant]
     Active Substance: MAGNESIUM OXIDE
     Indication: SUPPLEMENTATION THERAPY
     Dosage: 400 MG, 1X/DAY
  14. ZANTAC [Concomitant]
     Active Substance: RANITIDINE HYDROCHLORIDE
     Indication: GASTROOESOPHAGEAL REFLUX DISEASE
     Dosage: 300 MG, 1X/DAY
  15. FERROUS SULFATE. [Concomitant]
     Active Substance: FERROUS SULFATE
     Indication: ANAEMIA
     Dosage: 325 MG, 3X/DAY
     Dates: start: 201606
  16. VENLAFAXINE XR [Suspect]
     Active Substance: VENLAFAXINE HYDROCHLORIDE
     Dosage: 75 MG, 1X/DAY
     Route: 048
     Dates: start: 200812
  17. BENAZEPRIL [Concomitant]
     Active Substance: BENAZEPRIL HYDROCHLORIDE
     Indication: BLOOD PRESSURE ABNORMAL
     Dosage: 30 MG, 1X/DAY
  18. ASPIRIN. [Concomitant]
     Active Substance: ASPIRIN
     Indication: STENT PLACEMENT
     Dosage: 325 MG, 1X/DAY
     Dates: start: 200812

REACTIONS (11)
  - Hyperhidrosis [Recovered/Resolved]
  - Headache [Recovered/Resolved]
  - Abnormal dreams [Unknown]
  - Malaise [Recovered/Resolved]
  - Diarrhoea [Unknown]
  - Nausea [Recovering/Resolving]
  - Dizziness [Recovering/Resolving]
  - Influenza like illness [Recovered/Resolved]
  - Drug dose omission [Recovered/Resolved]
  - Withdrawal syndrome [Unknown]
  - Vomiting [Recovered/Resolved]

NARRATIVE: CASE EVENT DATE: 2017
